FAERS Safety Report 6049258-6 (Version None)
Quarter: 2009Q1

REPORT INFORMATION
  Report Type: 
  Country: None (occurrence: None)
  Receive Date: 20090123
  Receipt Date: 20090115
  Transmission Date: 20090719
  Serious: Yes (Hospitalization)
  Sender: FDA-Public Use
  Company Number: DE-ROXANE LABORATORIES, INC.-2009-RO-00069RO

PATIENT
  Age: 32 Year
  Sex: Male
  Weight: 103 kg

DRUGS (8)
  1. CLARITHROMYCIN [Suspect]
     Indication: LOWER RESPIRATORY TRACT INFECTION
     Route: 048
  2. QUETIAPINE FUMARATE [Suspect]
     Indication: ACUTE PSYCHOSIS
  3. VALPROIC ACID [Suspect]
     Dosage: 3000MG
  4. S-OMEPRAZOLE [Suspect]
     Dosage: 40MG
  5. METFORMIN HCL [Suspect]
     Dosage: 1000MG
  6. GLIBENCLAMIDE [Suspect]
     Dosage: 3.5MG
  7. EZETIMIBE [Suspect]
     Dosage: 10MG
  8. SULTAMICILLIN [Suspect]
     Indication: LOWER RESPIRATORY TRACT INFECTION
     Route: 048

REACTIONS (2)
  - DRUG INTERACTION [None]
  - OVERDOSE [None]
